FAERS Safety Report 4294881-2 (Version None)
Quarter: 2004Q1

REPORT INFORMATION
  Report Type: 
  Country: None (occurrence: None)
  Receive Date: 20040216
  Receipt Date: 20030207
  Transmission Date: 20041129
  Serious: No
  Sender: FDA-Public Use
  Company Number: US-GLAXOSMITHKLINE-A0395874A

PATIENT
  Age: 61 Year
  Sex: Male
  Weight: 72.7 kg

DRUGS (2)
  1. LAMICTAL [Suspect]
     Indication: BIPOLAR DISORDER
     Route: 048
  2. SERZONE [Concomitant]

REACTIONS (6)
  - AGEUSIA [None]
  - ASTHENIA [None]
  - BALANCE DISORDER [None]
  - DIARRHOEA [None]
  - TREMOR [None]
  - URINARY RETENTION [None]
